FAERS Safety Report 7241178 (Version 3)
Quarter: 2012Q4

REPORT INFORMATION
  Report Type: 
  Country: PL (occurrence: PL)
  Receive Date: 20100108
  Receipt Date: 20121211
  Transmission Date: 20130627
  Serious: Yes (Hospitalization)
  Sender: FDA-Public Use
  Company Number: PL-PFIZER INC-2009316117

PATIENT
  Age: 52 Year
  Sex: Female

DRUGS (2)
  1. AMLODIPINE BESILATE [Suspect]
  2. SPIRONOLACTONE [Suspect]

REACTIONS (1)
  - Acute generalised exanthematous pustulosis [Unknown]
